FAERS Safety Report 10788236 (Version 3)
Quarter: 2015Q1

REPORT INFORMATION
  Report Type: Spontaneous
  Country: US (occurrence: US)
  Receive Date: 20150212
  Receipt Date: 20150227
  Transmission Date: 20150721
  Serious: Yes (Disabling)
  Sender: FDA-Public Use
  Company Number: US-SA-2015SA015948

PATIENT
  Age: 92 Year
  Sex: Female

DRUGS (2)
  1. LANTUS SOLOSTAR [Suspect]
     Active Substance: INSULIN GLARGINE
     Dosage: TREATMENT START DATE: 2-3 YEARS AGO DOSE:30 UNIT(S)
     Route: 065
  2. SOLOSTAR [Suspect]
     Active Substance: DEVICE
     Dosage: TREATMENT START DATE: 2-3 YEARS AGO

REACTIONS (2)
  - Overdose [Unknown]
  - Wheelchair user [Unknown]
